FAERS Safety Report 9134988 (Version 1)
Quarter: 2013Q1

REPORT INFORMATION
  Report Type: Spontaneous
  Country: US (occurrence: US)
  Receive Date: 20130304
  Receipt Date: 20130304
  Transmission Date: 20140127
  Serious: Yes (Other)
  Sender: FDA-Public Use
  Company Number: US-JNJFOC-20090901090

PATIENT
  Sex: Female

DRUGS (1)
  1. LEVAQUIN [Suspect]
     Indication: SINUSITIS
     Dosage: 10 DAYS
     Route: 048
     Dates: start: 200404

REACTIONS (3)
  - Rotator cuff syndrome [Recovering/Resolving]
  - Rotator cuff syndrome [Recovered/Resolved]
  - Rotator cuff syndrome [Unknown]
